FAERS Safety Report 5087350-3 (Version None)
Quarter: 2006Q3

REPORT INFORMATION
  Report Type: 
  Country: None (occurrence: None)
  Receive Date: 20060821
  Receipt Date: 20060809
  Transmission Date: 20061208
  Serious: Yes (Other)
  Sender: FDA-Public Use
  Company Number: GBWYE682311AUG06

PATIENT
  Sex: Male

DRUGS (5)
  1. EFFEXOR XR [Suspect]
     Dosage: 300MG
     Dates: end: 20051101
  2. ATORVASTATIN CALCIUM [Suspect]
     Dosage: 10 MG
     Dates: end: 20051101
  3. DIAZEPAM [Suspect]
     Dosage: 10MG
     Dates: end: 20051101
  4. MIRTAZAPINE [Suspect]
     Dosage: 15MG
     Dates: end: 20051101
  5. ZOPICLONE (ZOPICLONE) [Suspect]
     Dosage: 15 MG
     Dates: end: 20051101

REACTIONS (14)
  - BLOOD URINE PRESENT [None]
  - CARDIAC FAILURE [None]
  - CHEST PAIN [None]
  - DRUG WITHDRAWAL SYNDROME [None]
  - FLUID RETENTION [None]
  - INSOMNIA [None]
  - MALAISE [None]
  - MOBILITY DECREASED [None]
  - PAIN [None]
  - PSORIASIS [None]
  - RAYNAUD'S PHENOMENON [None]
  - SPINAL DISORDER [None]
  - TRANSURETHRAL PROSTATECTOMY [None]
  - WEIGHT INCREASED [None]
